FAERS Safety Report 9629970 (Version 2)
Quarter: 2014Q2

REPORT INFORMATION
  Report Type: Spontaneous
  Country: US (occurrence: US)
  Receive Date: 20131017
  Receipt Date: 20140425
  Transmission Date: 20141212
  Serious: Yes (Other)
  Sender: FDA-Public Use
  Company Number: US-UCBSA-100008

PATIENT
  Age: 46 Year
  Sex: Female
  Weight: 68 kg

DRUGS (1)
  1. CIMZIA [Suspect]
     Indication: RHEUMATOID ARTHRITIS
     Dates: start: 201211

REACTIONS (5)
  - Otorrhoea [Unknown]
  - Otitis externa [Recovering/Resolving]
  - Swelling [Unknown]
  - Swollen tear duct [Unknown]
  - Blood pressure diastolic increased [Unknown]
